FAERS Safety Report 8608441-3 (Version None)
Quarter: 2012Q3

REPORT INFORMATION
  Report Type: 
  Country: None (occurrence: None)
  Receive Date: 20120808
  Receipt Date: 20120724
  Transmission Date: 20120928
  Serious: Yes (Death)
  Sender: FDA-Public Use
  Company Number: BR-20120027

PATIENT
  Age: 77 Year
  Sex: Male

DRUGS (5)
  1. HEPARIN [Concomitant]
  2. MONOCORDIL (ISOSORBIDE MONONITRATE) (ISOSORBIDE MONONITRATE) [Concomitant]
  3. HEXABRIX [Suspect]
     Indication: CATHETERISATION CARDIAC
     Dosage: 50 ML (50 ML, 1 IN 1 TOTAL)
     Dates: start: 20120419, end: 20120419
  4. XYLOCAINE (LIDOCAINE) (LIDOCAINE) [Concomitant]
  5. XENETIX (IOBITRIDOL) [Suspect]
     Indication: CATHETERISATION CARDIAC
     Dosage: 50 ML (50 ML, 1 IN 1 TOTAL)

REACTIONS (4)
  - PARAESTHESIA [None]
  - CARDIOGENIC SHOCK [None]
  - ANAPHYLACTIC SHOCK [None]
  - CARDIO-RESPIRATORY ARREST [None]
